FAERS Safety Report 10043820 (Version 3)
Quarter: 2014Q2

REPORT INFORMATION
  Report Type: Spontaneous
  Country: US (occurrence: US)
  Receive Date: 20140328
  Receipt Date: 20140604
  Transmission Date: 20141212
  Serious: No
  Sender: FDA-Public Use
  Company Number: US-PFIZER INC-2014086307

PATIENT
  Sex: Male

DRUGS (2)
  1. LYRICA [Suspect]
     Indication: NEUROPATHY PERIPHERAL
     Dosage: UNK
     Route: 048
  2. AZULFIDINE [Suspect]
     Dosage: UNK

REACTIONS (5)
  - Osteoporosis [Unknown]
  - Fibromyalgia [Unknown]
  - Dizziness [Unknown]
  - Ataxia [Unknown]
  - Balance disorder [Unknown]
